FAERS Safety Report 4401243-3 (Version None)
Quarter: 2004Q3

REPORT INFORMATION
  Report Type: 
  Country: None (occurrence: None)
  Receive Date: 20040907
  Receipt Date: 20040120
  Transmission Date: 20050211
  Serious: No
  Sender: FDA-Public Use
  Company Number: US-BRISTOL-MYERS SQUIBB COMPANY-12482923

PATIENT
  Age: 75 Year
  Sex: Male
  Weight: 99 kg

DRUGS (7)
  1. COUMADIN [Suspect]
     Indication: HEART RATE IRREGULAR
     Dosage: DOSAGE: 5MG AND 2.5MG ALTERNATING DAILY
     Route: 048
     Dates: start: 19990101
  2. CARDURA [Suspect]
     Dates: end: 19990501
  3. MAXZIDE [Concomitant]
     Dosage: THERAPY FROM: SINCE THE MID 90'S
  4. SYNTHROID [Concomitant]
     Dosage: THERAPY FROM: SINCE THE 70'S
  5. ATENOLOL [Concomitant]
     Dates: start: 19990101
  6. FOSAMAX [Concomitant]
     Dates: start: 20030501
  7. FLOMAX [Concomitant]
     Dosage: THERAPY FROM: JUNE

REACTIONS (7)
  - ALOPECIA [None]
  - FORMICATION [None]
  - HYPOAESTHESIA [None]
  - INFLAMMATION LOCALISED [None]
  - JOINT SWELLING [None]
  - MUSCULOSKELETAL STIFFNESS [None]
  - SKIN DISCOLOURATION [None]
